FAERS Safety Report 4684600-X (Version None)
Quarter: 2005Q2

REPORT INFORMATION
  Report Type: 
  Country: None (occurrence: None)
  Receive Date: 20050603
  Receipt Date: 20050525
  Transmission Date: 20051028
  Serious: Yes (Other)
  Sender: FDA-Public Use
  Company Number: 2005080475

PATIENT
  Sex: Female
  Weight: 90.7194 kg

DRUGS (2)
  1. LIPITOR [Suspect]
     Indication: BLOOD CHOLESTEROL INCREASED
     Dosage: 40 MG (40 MG, 1 IN 1 D), ORAL
     Route: 048
  2. ATENOLOL [Concomitant]

REACTIONS (2)
  - MUSCULAR WEAKNESS [None]
  - SPINAL COLUMN STENOSIS [None]
